FAERS Safety Report 8335191-3 (Version None)
Quarter: 2012Q2

REPORT INFORMATION
  Report Type: 
  Country: None (occurrence: None)
  Receive Date: 20120503
  Receipt Date: 20120425
  Transmission Date: 20120825
  Serious: Yes (Other)
  Sender: FDA-Public Use
  Company Number: GB-JNJFOC-20120412806

PATIENT
  Sex: Male

DRUGS (1)
  1. NICORETTE FRESHMINT LOZENGES 2 MG [Suspect]
     Indication: SMOKING CESSATION THERAPY
     Dosage: 5-6 LOZENGES A DAY
     Route: 065

REACTIONS (2)
  - INCORRECT DRUG ADMINISTRATION DURATION [None]
  - NICOTINE DEPENDENCE [None]
